FAERS Safety Report 5404480-4 (Version None)
Quarter: 2007Q3

REPORT INFORMATION
  Report Type: 
  Country: None (occurrence: None)
  Receive Date: 20070802
  Receipt Date: 20070721
  Transmission Date: 20080115
  Serious: Yes (Hospitalization, Other)
  Sender: FDA-Public Use
  Company Number: US-PFIZER INC-2007061348

PATIENT
  Sex: Female
  Weight: 58.1 kg

DRUGS (5)
  1. CHANTIX [Suspect]
     Indication: EX-SMOKER
     Dates: start: 20070501, end: 20070628
  2. LIPITOR [Concomitant]
  3. PAXIL [Concomitant]
  4. EVISTA [Concomitant]
  5. SYNTHROID [Concomitant]

REACTIONS (6)
  - ABNORMAL DREAMS [None]
  - CONVULSION [None]
  - HALLUCINATION [None]
  - LOSS OF CONSCIOUSNESS [None]
  - MEMORY IMPAIRMENT [None]
  - MENTAL IMPAIRMENT [None]
